FAERS Safety Report 13372169 (Version 3)
Quarter: 2017Q2

REPORT INFORMATION
  Report Type: Spontaneous
  Country: None (occurrence: US)
  Receive Date: 20170327
  Receipt Date: 20170519
  Transmission Date: 20170830
  Serious: Yes (Other)
  Sender: FDA-Public Use
  Company Number: US-TEVA-749986ACC

PATIENT
  Age: 55 Year
  Sex: Male

DRUGS (16)
  1. OXYBUTYNIN [Concomitant]
     Active Substance: OXYBUTYNIN
  2. ZYRTEC ALLGY [Concomitant]
  3. VITAMIN D [Concomitant]
     Active Substance: CHOLECALCIFEROL
  4. AMANTADINE. [Concomitant]
     Active Substance: AMANTADINE HYDROCHLORIDE
  5. MULTIVITAMIN [Concomitant]
     Active Substance: VITAMINS
  6. OMEGA 3 KRILL [Concomitant]
  7. DIAZEPAM. [Concomitant]
     Active Substance: DIAZEPAM
  8. MAGNESIUM [Concomitant]
     Active Substance: MAGNESIUM
  9. LISINOPRIL. [Concomitant]
     Active Substance: LISINOPRIL
  10. COPAXONE [Suspect]
     Active Substance: GLATIRAMER ACETATE
     Indication: MULTIPLE SCLEROSIS
     Route: 058
     Dates: start: 201403
  11. BUPROPN HCL XL [Concomitant]
  12. TIZANIDINE. [Concomitant]
     Active Substance: TIZANIDINE
  13. BACLOFEN. [Concomitant]
     Active Substance: BACLOFEN
  14. FLONASE SPR [Concomitant]
  15. PREDNISONE. [Concomitant]
     Active Substance: PREDNISONE
  16. BUPROPN HCL XL [Concomitant]
     Dosage: Q AM

REACTIONS (8)
  - Ataxia [Not Recovered/Not Resolved]
  - Progressive multiple sclerosis [Unknown]
  - Multiple sclerosis relapse [Unknown]
  - Motor dysfunction [Unknown]
  - Injection site bruising [Recovered/Resolved]
  - Paraesthesia [Unknown]
  - Balance disorder [Not Recovered/Not Resolved]
  - Fall [Unknown]

NARRATIVE: CASE EVENT DATE: 201702
